FAERS Safety Report 9411611 (Version 1)
Quarter: 2013Q3

REPORT INFORMATION
  Report Type: Spontaneous
  Country: US (occurrence: None)
  Receive Date: 20130718
  Receipt Date: 20130718
  Transmission Date: 20140515
  Serious: Yes (Hospitalization, Other)
  Sender: FDA-Public Use
  Company Number: None

PATIENT
  Age: 20 Year
  Sex: Female

DRUGS (2)
  1. ABILIFY (ARIPIPRAZOLE) [Suspect]
     Indication: DEPRESSION
     Dosage: 2 PILLS (10MG)
     Route: 048
     Dates: start: 201211, end: 20130403
  2. FLUOXETINE [Concomitant]

REACTIONS (3)
  - Suicide attempt [None]
  - Convulsion [None]
  - Overdose [None]
